FAERS Safety Report 8992669 (Version 1)
Quarter: 2013Q1

REPORT INFORMATION
  Report Type: Spontaneous
  Country: US (occurrence: US)
  Receive Date: 20130101
  Receipt Date: 20130101
  Transmission Date: 20140127
  Serious: Yes (Other)
  Sender: FDA-Public Use
  Company Number: US-ELI_LILLY_AND_COMPANY-US201212007400

PATIENT
  Sex: Male
  Weight: 111.11 kg

DRUGS (8)
  1. BYDUREON [Suspect]
     Indication: TYPE 2 DIABETES MELLITUS
     Dosage: 2 MG, WEEKLY (1/W)
     Route: 058
     Dates: start: 201210
  2. METFORMIN ER [Concomitant]
     Indication: TYPE 2 DIABETES MELLITUS
     Dosage: 750 MG, QD
     Route: 048
  3. GLIPIZIDE ER [Concomitant]
     Indication: TYPE 2 DIABETES MELLITUS
     Dosage: 5 MG, BID
     Route: 048
  4. METOPROLOL [Concomitant]
     Dosage: 10 MG, QD
     Route: 048
  5. BENICAR HCT [Concomitant]
     Dosage: 1 DF, QD
     Route: 048
  6. VITAMIN D [Concomitant]
     Dosage: 800 MG, QD
     Route: 048
  7. VITAMIN E [Concomitant]
     Dosage: 800 MG, QD
     Route: 048
  8. SINGULAIR [Concomitant]
     Dosage: UNK, QD

REACTIONS (1)
  - Arrhythmia [Unknown]
